FAERS Safety Report 7407319-0 (Version None)
Quarter: 2011Q2

REPORT INFORMATION
  Report Type: 
  Country: None (occurrence: None)
  Receive Date: 20110411
  Receipt Date: 20080815
  Transmission Date: 20111010
  Serious: Yes (Other)
  Sender: FDA-Public Use
  Company Number: DE-GENENTECH-316480

PATIENT
  Age: 91 Year

DRUGS (2)
  1. LUCENTIS [Suspect]
     Indication: MACULAR DEGENERATION
     Dosage: UNK
     Route: 031
     Dates: end: 20090120
  2. LUCENTIS [Suspect]
     Dosage: UNK
     Route: 031
     Dates: end: 20090120

REACTIONS (1)
  - EYE HAEMORRHAGE [None]
